FAERS Safety Report 7244465-9 (Version None)
Quarter: 2011Q1

REPORT INFORMATION
  Report Type: 
  Country: None (occurrence: None)
  Receive Date: 20110125
  Receipt Date: 20110118
  Transmission Date: 20110831
  Serious: Yes (Other)
  Sender: FDA-Public Use
  Company Number: BR-PFIZER INC-2010177552

PATIENT
  Age: 27 Year
  Sex: Female
  Weight: 90 kg

DRUGS (3)
  1. NORDETTE-21 [Suspect]
     Dosage: [LEVONORGESTREL 0.15MG / ETHINYLESTRADIOL 0.03MG], ONCE DAILY
     Dates: start: 20090101
  2. AAS [Concomitant]
     Dosage: UNK
  3. NORDETTE-21 [Suspect]
     Indication: CONTRACEPTION
     Dosage: [LEVONORGESTREL 0.15MG / ETHINYLESTRADIOL 0.03MG], ONCE DAILY
     Route: 048
     Dates: start: 20050101, end: 20071229

REACTIONS (12)
  - HYPERTENSION [None]
  - ERYTHEMA [None]
  - UNINTENDED PREGNANCY [None]
  - MENSTRUATION DELAYED [None]
  - PRURITUS [None]
  - CHILLS [None]
  - POOR QUALITY DRUG ADMINISTERED [None]
  - GESTATIONAL HYPERTENSION [None]
  - DRUG ADMINISTRATION ERROR [None]
  - IRRITABILITY [None]
  - SWELLING [None]
  - MENOMETRORRHAGIA [None]
